FAERS Safety Report 8134529 (Version 3)
Quarter: 2013Q3

REPORT INFORMATION
  Report Type: Spontaneous
  Country: JP (occurrence: JP)
  Receive Date: 20110913
  Receipt Date: 20130710
  Transmission Date: 20140515
  Serious: Yes (Other)
  Sender: FDA-Public Use
  Company Number: JP-ELI_LILLY_AND_COMPANY-JP201108000871

PATIENT
  Age: 37 Year
  Sex: Female
  Weight: 43.2 kg

DRUGS (13)
  1. CYMBALTA [Suspect]
     Indication: DEPRESSION
     Dosage: 20 MG, QD
     Route: 048
     Dates: start: 20110629, end: 20110630
  2. CYMBALTA [Suspect]
     Indication: NEURALGIA
  3. PAXIL [Concomitant]
     Indication: DEPRESSION
     Dosage: UNK
     Dates: end: 20110628
  4. ANTIBIOTICS-RESISTANT LACTIC ACID BACTERIAE [Concomitant]
     Route: 048
  5. MAGLAX [Concomitant]
     Route: 048
  6. DEPAS [Concomitant]
     Route: 048
  7. LANDSEN [Concomitant]
     Route: 048
  8. GASCON [Concomitant]
     Route: 048
  9. GASMOTIN [Concomitant]
     Route: 048
  10. FENTANYL [Concomitant]
  11. KETALAR [Concomitant]
     Route: 042
  12. DUROTEP [Concomitant]
     Route: 062
  13. DICLOFENAC SODIUM [Concomitant]
     Route: 048

REACTIONS (1)
  - Hepatic function abnormal [Recovered/Resolved]
